FAERS Safety Report 19831220 (Version 1)
Quarter: 2021Q3

REPORT INFORMATION
  Report Type: Spontaneous
  Country: US (occurrence: US)
  Receive Date: 20210915
  Receipt Date: 20210915
  Transmission Date: 20211014
  Serious: Yes (Death)
  Sender: FDA-Public Use
  Company Number: None

PATIENT
  Age: 84 Year
  Sex: Female

DRUGS (9)
  1. ALBUTEROL. [Concomitant]
     Active Substance: ALBUTEROL
  2. CIPRO [Concomitant]
     Active Substance: CIPROFLOXACIN HYDROCHLORIDE
  3. DOFETILIDE. [Suspect]
     Active Substance: DOFETILIDE
     Indication: ATRIAL FIBRILLATION
     Route: 048
     Dates: start: 20180301, end: 20210817
  4. AMOXICILLIN. [Concomitant]
     Active Substance: AMOXICILLIN
  5. LACTULOSE. [Concomitant]
     Active Substance: LACTULOSE
  6. PROMETHAZINE [Concomitant]
     Active Substance: PROMETHAZINE HYDROCHLORIDE
  7. METHYLPRED [Concomitant]
     Active Substance: METHYLPREDNISOLONE
  8. LOSARTAN POT [Concomitant]
     Active Substance: LOSARTAN POTASSIUM
  9. CARVEDILOL. [Concomitant]
     Active Substance: CARVEDILOL

REACTIONS (1)
  - Death [None]

NARRATIVE: CASE EVENT DATE: 20210817
